FAERS Safety Report 11428946 (Version 1)
Quarter: 2015Q3

REPORT INFORMATION
  Report Type: Spontaneous
  Country: US (occurrence: US)
  Receive Date: 20150828
  Receipt Date: 20150828
  Transmission Date: 20151125
  Serious: No
  Sender: FDA-Public Use
  Company Number: US-ROCHE-1138010

PATIENT
  Sex: Female

DRUGS (2)
  1. RIBAVIRIN. [Suspect]
     Active Substance: RIBAVIRIN
     Indication: CHRONIC HEPATITIS C
     Route: 048
     Dates: start: 20120412, end: 20120928
  2. PEGASYS [Suspect]
     Active Substance: PEGINTERFERON ALFA-2A
     Indication: CHRONIC HEPATITIS C
     Route: 058
     Dates: start: 20120412, end: 20120921

REACTIONS (9)
  - Thought blocking [Unknown]
  - Eczema [Unknown]
  - Memory impairment [Recovering/Resolving]
  - Blood calcium increased [Unknown]
  - Blood parathyroid hormone increased [Unknown]
  - Alopecia [Recovered/Resolved]
  - Viral load increased [Unknown]
  - Dysarthria [Unknown]
  - Confusional state [Recovering/Resolving]
